FAERS Safety Report 5741399-3 (Version None)
Quarter: 2008Q2

REPORT INFORMATION
  Report Type: 
  Country: None (occurrence: None)
  Receive Date: 20080514
  Receipt Date: 20080428
  Transmission Date: 20081010
  Serious: Yes (Hospitalization)
  Sender: FDA-Public Use
  Company Number: 8032216

PATIENT
  Age: 59 Year
  Sex: Male
  Weight: 74 kg

DRUGS (1)
  1. KEPPRA [Suspect]
     Indication: PARTIAL SEIZURES
     Dosage: 500 MG 2/D PO
     Route: 048
     Dates: start: 20070315

REACTIONS (1)
  - IMPAIRED HEALING [None]
